FAERS Safety Report 5901273-6 (Version None)
Quarter: 2008Q3

REPORT INFORMATION
  Report Type: 
  Country: None (occurrence: None)
  Receive Date: 20080929
  Receipt Date: 20080804
  Transmission Date: 20090109
  Serious: No
  Sender: FDA-Public Use
  Company Number: US-BRISTOL-MYERS SQUIBB COMPANY-14288534

PATIENT
  Age: 72 Year
  Sex: Female
  Weight: 75 kg

DRUGS (4)
  1. ORENCIA [Suspect]
     Indication: RHEUMATOID ARTHRITIS
     Dosage: 3 INFUSIONS IN 06/2008, 1 ON 07/16/2008
     Dates: start: 20080601
  2. LEVOXYL [Concomitant]
  3. TOPROL-XL [Concomitant]
  4. CALCIUM + VITAMIN D [Concomitant]

REACTIONS (1)
  - BLOOD GLUCOSE INCREASED [None]
